FAERS Safety Report 26137172 (Version 1)
Quarter: 2025Q4

REPORT INFORMATION
  Report Type: Spontaneous
  Country: EU (occurrence: EU)
  Receive Date: 20251209
  Receipt Date: 20251209
  Transmission Date: 20260118
  Serious: Yes (Other)
  Sender: GILEAD
  Company Number: EU-GILEAD-2025-0739401

PATIENT
  Sex: Female

DRUGS (4)
  1. TRODELVY [Suspect]
     Active Substance: SACITUZUMAB GOVITECAN-HZIY
     Indication: Hormone receptor positive HER2 negative breast cancer
     Dosage: UNK
     Route: 065
     Dates: start: 202506
  2. ESCITALOPRAM OXALATE [Concomitant]
     Active Substance: ESCITALOPRAM OXALATE
     Indication: Hormone therapy
     Dosage: UNK, QD
  3. KISQALI [Concomitant]
     Active Substance: RIBOCICLIB SUCCINATE
     Indication: Hormone therapy
     Dosage: UNK, QD
  4. EVEROLIMUS [Concomitant]
     Active Substance: EVEROLIMUS
     Indication: Hormone therapy
     Dosage: UNK, QD

REACTIONS (2)
  - Rectal haemorrhage [Unknown]
  - Weight increased [Unknown]
